FAERS Safety Report 25035836 (Version 1)
Quarter: 2025Q1

REPORT INFORMATION
  Report Type: Spontaneous
  Country: US (occurrence: None)
  Receive Date: 20250304
  Receipt Date: 20250304
  Transmission Date: 20250409
  Serious: Yes (Hospitalization)
  Sender: FDA-CTU
  Company Number: None

PATIENT
  Age: 60 Year
  Sex: Female
  Weight: 67.3 kg

DRUGS (1)
  1. LUTETIUM OXODOTREOTIDE LU-177 [Suspect]
     Active Substance: LUTETIUM OXODOTREOTIDE LU-177

REACTIONS (9)
  - Abdominal pain [None]
  - Chest pain [None]
  - Nausea [None]
  - Dizziness [None]
  - Vomiting [None]
  - Dyspnoea [None]
  - Hypercalcaemia [None]
  - Pericardial effusion [None]
  - Coronary artery disease [None]

NARRATIVE: CASE EVENT DATE: 20250227
